FAERS Safety Report 9311001 (Version 1)
Quarter: 2013Q2

REPORT INFORMATION
  Report Type: Spontaneous
  Country: US (occurrence: None)
  Receive Date: 20130523
  Receipt Date: 20130523
  Transmission Date: 20140414
  Serious: No
  Sender: FDA-Public Use
  Company Number: None

PATIENT
  Age: 62 Year
  Sex: Male
  Weight: 76 kg

DRUGS (2)
  1. 5-FLUOROURACIL (5-FU) [Suspect]
  2. OXALIPLATIN (ELOXATIN) [Suspect]

REACTIONS (2)
  - Nausea [None]
  - Vomiting [None]
